FAERS Safety Report 8671896 (Version 2)
Quarter: 2012Q4

REPORT INFORMATION
  Report Type: 
  Country: US (occurrence: US)
  Receive Date: 20120718
  Receipt Date: 20120924
  Transmission Date: 20130627
  Serious: Yes (Hospitalization, Other)
  Sender: FDA-Public Use
  Company Number: US-ELI_LILLY_AND_COMPANY-US201207002036

PATIENT
  Age: 75 None
  Sex: Male
  Weight: 77.55 kg

DRUGS (6)
  1. BYETTA [Suspect]
     Indication: TYPE 2 DIABETES MELLITUS
     Dosage: 10 ug, bid
     Route: 058
     Dates: start: 20110804, end: 20120207
  2. LISINOPRIL                              /USA/ [Concomitant]
     Indication: CARDIAC DISORDER
     Dosage: UNK
     Route: 048
  3. SOTALOL [Concomitant]
     Indication: CARDIAC DISORDER
     Dosage: UNK
     Route: 048
  4. ASPIRIN                                 /USA/ [Concomitant]
     Indication: CARDIAC DISORDER
     Dosage: 81 mg, qd
     Route: 048
  5. WARFARIN [Concomitant]
     Indication: CARDIAC DISORDER
     Dosage: UNK
     Route: 048
  6. CRESTOR [Concomitant]
     Indication: BLOOD CHOLESTEROL
     Dosage: UNK
     Route: 048

REACTIONS (5)
  - Cardiac ablation [Recovered/Resolved]
  - Dyspnoea [Recovering/Resolving]
  - Diverticulitis [Recovered/Resolved]
  - Malaise [Recovering/Resolving]
  - Blood glucose increased [Recovered/Resolved]
